FAERS Safety Report 25953096 (Version 2)
Quarter: 2025Q4

REPORT INFORMATION
  Report Type: Spontaneous
  Country: JP (occurrence: JP)
  Receive Date: 20251023
  Receipt Date: 20251121
  Transmission Date: 20260118
  Serious: Yes (Death, Other)
  Sender: ARGENX BVBA
  Company Number: JP-ARGENX-2025-ARGX-JP014422

PATIENT

DRUGS (1)
  1. VYVGART [Suspect]
     Active Substance: EFGARTIGIMOD ALFA-FCAB
     Indication: Immune thrombocytopenia
     Dosage: UNK
     Route: 042
     Dates: start: 20251011, end: 20251017

REACTIONS (1)
  - Multiple organ dysfunction syndrome [Fatal]
